FAERS Safety Report 13392845 (Version 1)
Quarter: 2017Q1

REPORT INFORMATION
  Report Type: Spontaneous
  Country: US (occurrence: US)
  Receive Date: 20170331
  Receipt Date: 20170331
  Transmission Date: 20170429
  Serious: Yes (Other)
  Sender: FDA-Public Use
  Company Number: US-UCBSA-2017012064

PATIENT
  Age: 7 Year
  Sex: Female

DRUGS (5)
  1. OXCARBAZEPINE. [Concomitant]
     Active Substance: OXCARBAZEPINE
     Indication: SEIZURE
     Dosage: UP TO 300 MGTHREE TIMES DAILY
  2. CLONAZEPAM. [Concomitant]
     Active Substance: CLONAZEPAM
     Indication: SEIZURE
     Dosage: UP TO 0.5MGTWICE DAILY
  3. PHENYTOIN. [Concomitant]
     Active Substance: PHENYTOIN
     Indication: SEIZURE
     Dosage: UP TO 50 MG THREE TIMES DAILY
  4. LEVETIRACETAM. [Suspect]
     Active Substance: LEVETIRACETAM
     Indication: SEIZURE
     Dosage: UNK
  5. LEVETIRACETAM. [Suspect]
     Active Substance: LEVETIRACETAM
     Dosage: UPTO 1500 MG, 2X/DAY (BID)

REACTIONS (3)
  - Rasmussen encephalitis [Unknown]
  - Status epilepticus [Recovered/Resolved]
  - Drug ineffective [Unknown]
